FAERS Safety Report 16900366 (Version 1)
Quarter: 2019Q4

REPORT INFORMATION
  Report Type: Spontaneous
  Country: US (occurrence: US)
  Receive Date: 20191009
  Receipt Date: 20191009
  Transmission Date: 20200122
  Serious: No
  Sender: FDA-Public Use
  Company Number: US-KALEO, INC.-2018KL000142

PATIENT
  Age: 47 Year
  Sex: Female
  Weight: 72.64 kg

DRUGS (1)
  1. AUVI-Q [Suspect]
     Active Substance: EPINEPHRINE
     Indication: ANAPHYLACTIC REACTION
     Dates: start: 20180821, end: 20180821

REACTIONS (4)
  - Nervousness [Recovered/Resolved]
  - Injection site haemorrhage [Recovered/Resolved]
  - Accidental exposure to product [Recovered/Resolved]
  - Heart rate increased [Recovered/Resolved]

NARRATIVE: CASE EVENT DATE: 20180821
